FAERS Safety Report 25520181 (Version 3)
Quarter: 2025Q4

REPORT INFORMATION
  Report Type: Spontaneous
  Country: CA (occurrence: CA)
  Receive Date: 20250704
  Receipt Date: 20251104
  Transmission Date: 20260118
  Serious: Yes (Death, Life-Threatening, Hospitalization, Disabling, Congenital Anomaly, Other)
  Sender: GLAXOSMITHKLINE
  Company Number: CA-GSK-CA2025AMR083061

PATIENT
  Age: 43 Year
  Sex: Female
  Weight: 96 kg

DRUGS (74)
  1. NUCALA [Suspect]
     Active Substance: MEPOLIZUMAB
     Indication: Product used for unknown indication
     Dosage: UNK
  2. LAMICTAL [Suspect]
     Active Substance: LAMOTRIGINE
     Indication: Product used for unknown indication
     Dosage: 25 MG
  3. ADALIMUMAB [Suspect]
     Active Substance: ADALIMUMAB
     Indication: Rheumatoid arthritis
     Dosage: 40 MG SOLUTION SUBCUTANEOUS
  4. AIMOVIG [Suspect]
     Active Substance: ERENUMAB-AOOE
     Indication: Migraine
     Dosage: SOLUTION
  5. AIMOVIG [Suspect]
     Active Substance: ERENUMAB-AOOE
     Indication: Rheumatoid arthritis
  6. ALENDRONIC ACID [Suspect]
     Active Substance: ALENDRONIC ACID
     Indication: Rheumatoid arthritis
     Dosage: UNK
  7. CANDESARTAN [Suspect]
     Active Substance: CANDESARTAN
     Indication: Migraine
     Dosage: UNK
  8. COSENTYX [Suspect]
     Active Substance: SECUKINUMAB
     Indication: Psoriatic arthropathy
     Dosage: UNK
  9. COSENTYX [Suspect]
     Active Substance: SECUKINUMAB
     Indication: Rheumatoid arthritis
  10. DICLOFENAC [Suspect]
     Active Substance: DICLOFENAC
     Indication: Product used for unknown indication
     Dosage: UNK
     Route: 065
  11. DICLOFENAC POTASSIUM [Suspect]
     Active Substance: DICLOFENAC POTASSIUM
     Indication: Product used for unknown indication
     Dosage: UNK
     Route: 065
  12. DICLOFENAC SODIUM [Suspect]
     Active Substance: DICLOFENAC SODIUM
     Indication: Product used for unknown indication
     Dosage: UNK
  13. LEFLUNOMIDE [Suspect]
     Active Substance: LEFLUNOMIDE
     Indication: Rheumatoid arthritis
     Dosage: 20 MG, WE
     Route: 065
  14. LEFLUNOMIDE [Suspect]
     Active Substance: LEFLUNOMIDE
     Dosage: 10 MG, WE
  15. ERELZI [Suspect]
     Active Substance: ETANERCEPT-SZZS
     Indication: Rheumatoid arthritis
     Dosage: 50 MG
  16. HYDROXYCHLOROQUINE SULFATE [Suspect]
     Active Substance: HYDROXYCHLOROQUINE SULFATE
     Indication: Rheumatoid arthritis
     Dosage: 40 MG, QD
  17. INFLIXIMAB [Suspect]
     Active Substance: INFLIXIMAB
     Indication: Rheumatoid arthritis
     Dosage: 300 MG
  18. ISOPROPYL ALCOHOL [Suspect]
     Active Substance: ISOPROPYL ALCOHOL
     Indication: Product used for unknown indication
     Dosage: LIQUID TOPICAL
  19. METFORMIN HYDROCHLORIDE [Suspect]
     Active Substance: METFORMIN HYDROCHLORIDE
     Indication: Migraine
     Dosage: INTRAVENOUS BOLUS
  20. METHOTREXATE [Suspect]
     Active Substance: METHOTREXATE
     Indication: Rheumatoid arthritis
     Dosage: 25 MG, WE
  21. METHOTREXATE [Suspect]
     Active Substance: METHOTREXATE
     Dosage: 225 MG
  22. METHOTREXATE [Suspect]
     Active Substance: METHOTREXATE
     Dosage: 50 MG, QD
  23. METHOTREXATE [Suspect]
     Active Substance: METHOTREXATE
     Dosage: 25 MG, QD
  24. METHOTREXATE [Suspect]
     Active Substance: METHOTREXATE
     Dosage: 1 MG, QD
  25. METHOTREXATE [Suspect]
     Active Substance: METHOTREXATE
     Dosage: 20 MG, QD
  26. METHOTREXATE [Suspect]
     Active Substance: METHOTREXATE
     Dosage: 40 MG, QD
  27. METHYLPREDNISOLONE SODIUM SUCCINATE [Suspect]
     Active Substance: METHYLPREDNISOLONE SODIUM SUCCINATE
     Indication: Product used for unknown indication
     Dosage: UNK
  28. MAGNESIUM [Suspect]
     Active Substance: MAGNESIUM
     Indication: Product used for unknown indication
     Dosage: UNK
  29. MYRBETRIQ [Suspect]
     Active Substance: MIRABEGRON
     Indication: Product used for unknown indication
     Dosage: 1 DF, QD EXTENDED RELEASE
  30. NAPROXEN [Suspect]
     Active Substance: NAPROXEN
     Indication: Product used for unknown indication
     Dosage: 1000 MG, QD, ENTERIC COATED
  31. NAPROXEN SODIUM [Suspect]
     Active Substance: NAPROXEN SODIUM
     Indication: Product used for unknown indication
     Dosage: 500 MG
  32. ORENCIA [Suspect]
     Active Substance: ABATACEPT
     Indication: Rheumatoid arthritis
     Dosage: UNK
  33. ORENCIA [Suspect]
     Active Substance: ABATACEPT
     Dosage: 365 DF INTRAVENOUS BOLUS
  34. OXYCODONE [Suspect]
     Active Substance: OXYCODONE
     Indication: Product used for unknown indication
     Dosage: UNK
  35. PHTHALYLSULFATHIAZOLE [Suspect]
     Active Substance: PHTHALYLSULFATHIAZOLE
     Indication: Rheumatoid arthritis
     Dosage: UNK
  36. PHTHALYLSULFATHIAZOLE [Suspect]
     Active Substance: PHTHALYLSULFATHIAZOLE
     Dosage: 1000 MG
  37. PHTHALYLSULFATHIAZOLE [Suspect]
     Active Substance: PHTHALYLSULFATHIAZOLE
     Dosage: 500 MG
  38. PHTHALYLSULFATHIAZOLE [Suspect]
     Active Substance: PHTHALYLSULFATHIAZOLE
     Dosage: 2000 MG, QD
  39. PHTHALYLSULFATHIAZOLE [Suspect]
     Active Substance: PHTHALYLSULFATHIAZOLE
     Dosage: 400 MG
  40. PREDNISONE [Suspect]
     Active Substance: PREDNISONE
     Indication: Rheumatoid arthritis
     Dosage: 5 MG
  41. PSEUDOEPHEDRINE HYDROCHLORIDE [Suspect]
     Active Substance: PSEUDOEPHEDRINE HYDROCHLORIDE
     Indication: Rheumatoid arthritis
     Dosage: 10 MG
  42. PSEUDOEPHEDRINE HYDROCHLORIDE [Suspect]
     Active Substance: PSEUDOEPHEDRINE HYDROCHLORIDE
     Dosage: 25 MG
  43. PSEUDOEPHEDRINE HYDROCHLORIDE [Suspect]
     Active Substance: PSEUDOEPHEDRINE HYDROCHLORIDE
     Dosage: 1 MG
  44. RANITIDINE HYDROCHLORIDE [Suspect]
     Active Substance: RANITIDINE HYDROCHLORIDE
     Indication: Rheumatoid arthritis
  45. RAMIPRIL [Suspect]
     Active Substance: RAMIPRIL
     Indication: Rheumatoid arthritis
  46. RITUXIMAB [Suspect]
     Active Substance: RITUXIMAB
     Indication: Rheumatoid arthritis
     Dosage: 365 MG INTRAVENOUS BOLUS
  47. DIETARY SUPPLEMENT\HERBALS [Suspect]
     Active Substance: DIETARY SUPPLEMENT\HERBALS
     Indication: Product used for unknown indication
  48. SIMPONI [Suspect]
     Active Substance: GOLIMUMAB
     Indication: Prostatic specific antigen
     Dosage: SOLUTION SUBCUTANEOUS
  49. SIMPONI [Suspect]
     Active Substance: GOLIMUMAB
     Dosage: 50 MG, SOLUTION SUBCUTANEOUS
  50. GOLD SODIUM THIOMALATE [Suspect]
     Active Substance: GOLD SODIUM THIOMALATE
     Indication: Product used for unknown indication
  51. SULFASALAZINE [Suspect]
     Active Substance: SULFASALAZINE
     Indication: Rheumatoid arthritis
     Dosage: 1 G, QD
  52. SULFASALAZINE [Suspect]
     Active Substance: SULFASALAZINE
     Dosage: 1000 MG
  53. SULFASALAZINE [Suspect]
     Active Substance: SULFASALAZINE
     Dosage: 1 G
  54. SULFASALAZINE [Suspect]
     Active Substance: SULFASALAZINE
     Dosage: 2 DF, QD
  55. SULFASALAZINE [Suspect]
     Active Substance: SULFASALAZINE
     Dosage: 4 MG, QD
  56. SULFASALAZINE [Suspect]
     Active Substance: SULFASALAZINE
     Dosage: 10 MG, QD
  57. SULFASALAZINE [Suspect]
     Active Substance: SULFASALAZINE
     Dosage: 2 G, QD
  58. SULFASALAZINE [Suspect]
     Active Substance: SULFASALAZINE
     Dosage: 300 MG, QD
  59. SULFASALAZINE [Suspect]
     Active Substance: SULFASALAZINE
     Dosage: 100 MG
  60. SULFASALAZINE [Suspect]
     Active Substance: SULFASALAZINE
     Dosage: 2000 MG, QD
  61. SULFASALAZINE [Suspect]
     Active Substance: SULFASALAZINE
     Dosage: 500 MG, QD
  62. TOFACITINIB [Suspect]
     Active Substance: TOFACITINIB
     Indication: Rheumatoid arthritis
     Dosage: 5 MG
  63. TOFACITINIB CITRATE [Suspect]
     Active Substance: TOFACITINIB CITRATE
     Indication: Product used for unknown indication
     Dosage: 0.5 MG
  64. TOPIRAMATE [Suspect]
     Active Substance: TOPIRAMATE
     Indication: Migraine
  65. TRAMADOL HYDROCHLORIDE [Suspect]
     Active Substance: TRAMADOL HYDROCHLORIDE
     Indication: Migraine
  66. TRIAMCINOLONE ACETONIDE [Suspect]
     Active Substance: TRIAMCINOLONE ACETONIDE
     Indication: Rheumatoid arthritis
     Dosage: SUSPENSION INTRAARTICULAR
  67. PANTOPRAZOLE SODIUM [Concomitant]
     Active Substance: PANTOPRAZOLE SODIUM
     Indication: Product used for unknown indication
  68. DOCONEXENT [Concomitant]
     Active Substance: DOCONEXENT
     Indication: Product used for unknown indication
     Dosage: UNK
  69. LISINOPRIL [Concomitant]
     Active Substance: LISINOPRIL
     Indication: Product used for unknown indication
     Dosage: UNK
  70. LORAZEPAM [Concomitant]
     Active Substance: LORAZEPAM
     Indication: Product used for unknown indication
     Dosage: UNK
  71. SULFASALAZINE [Concomitant]
     Active Substance: SULFASALAZINE
     Indication: Product used for unknown indication
  72. RISEDRONATE SODIUM [Concomitant]
     Active Substance: RISEDRONATE SODIUM
     Indication: Product used for unknown indication
     Dosage: UNK
  73. QUETIAPINE FUMARATE [Concomitant]
     Active Substance: QUETIAPINE FUMARATE
     Indication: Product used for unknown indication
     Dosage: UNK
  74. PREDNISOLONE [Concomitant]
     Active Substance: PREDNISOLONE
     Indication: Product used for unknown indication
     Dosage: UNK

REACTIONS (65)
  - Abdominal discomfort [Fatal]
  - Irritable bowel syndrome [Fatal]
  - Joint range of motion decreased [Fatal]
  - Joint swelling [Fatal]
  - Memory impairment [Fatal]
  - Migraine [Fatal]
  - Muscle spasms [Fatal]
  - Night sweats [Fatal]
  - Paraesthesia [Fatal]
  - Peripheral swelling [Fatal]
  - Peripheral venous disease [Fatal]
  - Product quality issue [Fatal]
  - Rash [Fatal]
  - Synovitis [Fatal]
  - Taste disorder [Fatal]
  - Vomiting [Fatal]
  - Weight increased [Fatal]
  - Wound [Fatal]
  - Lip dry [Fatal]
  - Liver injury [Fatal]
  - Lower respiratory tract infection [Fatal]
  - Lung disorder [Fatal]
  - Maternal exposure during pregnancy [Fatal]
  - Muscle injury [Fatal]
  - Musculoskeletal pain [Fatal]
  - Nail disorder [Fatal]
  - Nasopharyngitis [Fatal]
  - Obesity [Fatal]
  - Off label use [Fatal]
  - Osteoarthritis [Fatal]
  - Pain [Fatal]
  - Pemphigus [Fatal]
  - Pericarditis [Fatal]
  - Product use in unapproved indication [Fatal]
  - Psoriatic arthropathy [Fatal]
  - Rheumatoid arthritis [Fatal]
  - Stomatitis [Fatal]
  - Swelling [Fatal]
  - Systemic lupus erythematosus [Fatal]
  - Type 2 diabetes mellitus [Fatal]
  - Urticaria [Fatal]
  - Wheezing [Fatal]
  - Wound infection [Fatal]
  - Abdominal pain upper [Fatal]
  - Anti-cyclic citrullinated peptide antibody positive [Fatal]
  - Arthralgia [Fatal]
  - Blepharospasm [Fatal]
  - Blister [Fatal]
  - Blood cholesterol increased [Fatal]
  - Contraindicated product administered [Fatal]
  - Decreased appetite [Fatal]
  - Depression [Fatal]
  - Diarrhoea [Fatal]
  - Dizziness [Fatal]
  - Dry mouth [Fatal]
  - Exposure during pregnancy [Fatal]
  - Folliculitis [Fatal]
  - Gastrooesophageal reflux disease [Fatal]
  - General physical health deterioration [Fatal]
  - Glossodynia [Fatal]
  - Headache [Fatal]
  - Hepatic enzyme increased [Fatal]
  - Hypocholesterolaemia [Fatal]
  - Impaired healing [Fatal]
  - Infusion related reaction [Fatal]
